FAERS Safety Report 4432558-0 (Version None)
Quarter: 2004Q3

REPORT INFORMATION
  Report Type: 
  Country: None (occurrence: None)
  Receive Date: 20040820
  Receipt Date: 20040807
  Transmission Date: 20050211
  Serious: Yes (Other)
  Sender: FDA-Public Use
  Company Number: 2004021090

PATIENT
  Age: 28 Year
  Sex: Female

DRUGS (1)
  1. RELPAX [Suspect]
     Indication: MIGRAINE
     Dosage: 40 MG (DAILY), ORAL
     Route: 048
     Dates: start: 20030901, end: 20040301

REACTIONS (1)
  - TRANSIENT ISCHAEMIC ATTACK [None]
